FAERS Safety Report 14536701 (Version 1)
Quarter: 2018Q1

REPORT INFORMATION
  Report Type: Spontaneous
  Country: IT (occurrence: IT)
  Receive Date: 20180215
  Receipt Date: 20180215
  Transmission Date: 20180509
  Serious: Yes (Hospitalization)
  Sender: FDA-Public Use
  Company Number: IT-BAYER-2018-025321

PATIENT
  Age: 80 Year
  Sex: Male

DRUGS (1)
  1. STIVARGA [Suspect]
     Active Substance: REGORAFENIB
     Indication: COLON CANCER
     Dosage: 160 MG, UNK
     Route: 048
     Dates: start: 20151105, end: 20160315

REACTIONS (3)
  - Metastases to lung [Unknown]
  - Metastases to adrenals [Unknown]
  - Metastases to liver [Unknown]

NARRATIVE: CASE EVENT DATE: 20160315
